FAERS Safety Report 17771763 (Version 1)
Quarter: 2020Q2

REPORT INFORMATION
  Report Type: Spontaneous
  Country: US (occurrence: US)
  Receive Date: 20200512
  Receipt Date: 20200512
  Transmission Date: 20200714
  Serious: No
  Sender: FDA-Public Use
  Company Number: US-PFIZER INC-2020189717

PATIENT
  Age: 51 Year
  Sex: Female

DRUGS (1)
  1. XELJANZ [Suspect]
     Active Substance: TOFACITINIB CITRATE
     Dosage: 5 MG, 2X/DAY (TWO TIMES DAILY)
     Route: 048
     Dates: start: 20200508

REACTIONS (3)
  - Nausea [Unknown]
  - Dyspepsia [Unknown]
  - Abdominal discomfort [Unknown]
